FAERS Safety Report 5691313-4 (Version None)
Quarter: 2008Q2

REPORT INFORMATION
  Report Type: 
  Country: None (occurrence: None)
  Receive Date: 20080402
  Receipt Date: 20080331
  Transmission Date: 20081010
  Serious: Yes (Hospitalization, Disabling)
  Sender: FDA-Public Use
  Company Number: JP-BRISTOL-MYERS SQUIBB COMPANY-14100788

PATIENT
  Age: 67 Year
  Sex: Male

DRUGS (7)
  1. TAXOL [Suspect]
     Indication: NON-SMALL CELL LUNG CANCER
     Route: 041
     Dates: start: 20080214, end: 20080214
  2. PARAPLATIN [Suspect]
     Indication: NON-SMALL CELL LUNG CANCER
     Route: 041
     Dates: start: 20080214, end: 20080214
  3. LASIX [Concomitant]
     Route: 042
     Dates: start: 20080214, end: 20080214
  4. NASEA [Concomitant]
     Route: 041
     Dates: start: 20080214, end: 20080214
  5. POLARAMINE [Concomitant]
     Route: 041
     Dates: start: 20080214, end: 20080214
  6. DECADRON [Concomitant]
     Route: 041
     Dates: start: 20080214, end: 20080214
  7. FAMOTIDINE [Concomitant]
     Route: 041
     Dates: start: 20080214, end: 20080214

REACTIONS (3)
  - CEREBRAL INFARCTION [None]
  - NEUTROPENIA [None]
  - SYNCOPE [None]
